FAERS Safety Report 13020531 (Version 4)
Quarter: 2017Q1

REPORT INFORMATION
  Report Type: Spontaneous
  Country: US (occurrence: US)
  Receive Date: 20161212
  Receipt Date: 20170105
  Transmission Date: 20170428
  Serious: Yes (Hospitalization)
  Sender: FDA-Public Use
  Company Number: US-ACTELION-A-US2016-146655

PATIENT
  Age: 70 Year
  Sex: Male

DRUGS (2)
  1. VELETRI [Suspect]
     Active Substance: EPOPROSTENOL
     Indication: PULMONARY ARTERIAL HYPERTENSION
     Dosage: UNK
     Route: 042
     Dates: start: 20120110
  2. OPSUMIT [Suspect]
     Active Substance: MACITENTAN
     Indication: PULMONARY ARTERIAL HYPERTENSION
     Route: 048

REACTIONS (6)
  - Device related infection [Unknown]
  - Upper respiratory tract infection [Unknown]
  - Sepsis [Unknown]
  - Acute respiratory failure [Unknown]
  - Chronic obstructive pulmonary disease [Unknown]
  - Blood culture negative [Unknown]

NARRATIVE: CASE EVENT DATE: 20161127
